FAERS Safety Report 6464926-X (Version None)
Quarter: 2009Q4

REPORT INFORMATION
  Report Type: 
  Country: None (occurrence: None)
  Receive Date: 20091201
  Receipt Date: 20091124
  Transmission Date: 20100525
  Serious: Yes (Death)
  Sender: FDA-Public Use
  Company Number: SE-BRISTOL-MYERS SQUIBB COMPANY-14629505

PATIENT
  Age: 59 Year
  Sex: Male

DRUGS (3)
  1. ERBITUX [Suspect]
     Indication: COLORECTAL CANCER METASTATIC
     Dates: start: 20090504
  2. CAMPTOSAR [Suspect]
     Indication: COLORECTAL CANCER METASTATIC
     Dates: start: 20090504
  3. CORTISONE ACETATE [Concomitant]

REACTIONS (1)
  - RHABDOMYOLYSIS [None]
